FAERS Safety Report 16445754 (Version 2)
Quarter: 2019Q3

REPORT INFORMATION
  Report Type: Report from Study
  Country: None (occurrence: IT)
  Receive Date: 20190618
  Receipt Date: 20190708
  Transmission Date: 20191004
  Serious: Yes (Hospitalization)
  Sender: FDA-Public Use
  Company Number: IT-ABBVIE-19S-083-2823980-00

PATIENT
  Age: 64 Year
  Sex: Male

DRUGS (1)
  1. DUODOPA [Suspect]
     Active Substance: CARBIDOPA\LEVODOPA
     Indication: PARKINSON^S DISEASE
     Dosage: MD 3(+3)??CR 2,3??ED 1,5
     Route: 050
     Dates: start: 20190610

REACTIONS (2)
  - Ascites [Unknown]
  - Abdominal pain [Unknown]

NARRATIVE: CASE EVENT DATE: 201906
